FAERS Safety Report 4696842-8 (Version None)
Quarter: 2005Q2

REPORT INFORMATION
  Report Type: 
  Country: None (occurrence: None)
  Receive Date: 20050620
  Receipt Date: 20050607
  Transmission Date: 20051028
  Serious: Yes (Other)
  Sender: FDA-Public Use
  Company Number: HQWYE320908JUN05

PATIENT
  Age: 16 Year
  Sex: Female

DRUGS (1)
  1. NORGESTREL AND ETHINYL ESTRADIOL [Suspect]
     Dosage: 1 TABLET 1X PER 1 DAY ORAL
     Route: 048
     Dates: start: 20050301

REACTIONS (1)
  - EPILEPSY [None]
